FAERS Safety Report 8894726 (Version 1)
Quarter: 2012Q4

REPORT INFORMATION
  Report Type: 
  Country: SE (occurrence: SE)
  Receive Date: 20121108
  Receipt Date: 20121108
  Transmission Date: 20130627
  Serious: Yes (Hospitalization)
  Sender: FDA-Public Use
  Company Number: SE-PFIZER INC-2012273011

PATIENT
  Age: 44 Year
  Sex: Female
  Weight: 94.79 kg

DRUGS (10)
  1. GENOTROPIN [Suspect]
     Dosage: 0.6 mg, 1x/day, 7 injections/week.
     Route: 058
     Dates: start: 20071128
  2. TENORMIN [Concomitant]
     Indication: TACHYCARDIA
     Dosage: UNK
     Dates: start: 20011205
  3. HUMALOG [Concomitant]
     Indication: DIABETES MELLITUS
     Dosage: UNK
     Dates: start: 20021215
  4. LANTUS [Concomitant]
     Indication: DIABETES MELLITUS
     Dosage: UNK
     Dates: start: 20021118
  5. UREA [Concomitant]
     Indication: SKIN DISORDER
     Dosage: UNK
     Dates: start: 20040602
  6. ALVEDON [Concomitant]
     Indication: NEURALGIA
     Dosage: UNK
     Dates: start: 20040602
  7. ALVEDON [Concomitant]
     Indication: NEURITIS
  8. OMEPRAZOL [Concomitant]
     Indication: GASTRITIS
     Dosage: UNK
     Dates: start: 20050331
  9. REDUCTIL [Concomitant]
     Indication: OBESITY
     Dosage: UNK
     Dates: start: 20070829
  10. SALAZOPYRIN EN [Concomitant]
     Indication: ARTHRALGIA
     Dosage: UNK
     Dates: start: 20050428

REACTIONS (1)
  - Gastrointestinal disorder [Unknown]
